FAERS Safety Report 6794488-9 (Version None)
Quarter: 2010Q2

REPORT INFORMATION
  Report Type: 
  Country: None (occurrence: None)
  Receive Date: 20100625
  Receipt Date: 20100614
  Transmission Date: 20101027
  Serious: Yes (Hospitalization, Other)
  Sender: FDA-Public Use
  Company Number: DE-PFIZER INC-2010041599

PATIENT
  Age: 51 Year
  Sex: Female
  Weight: 58 kg

DRUGS (11)
  1. ECALTA [Suspect]
     Indication: CANDIDA PNEUMONIA
     Dosage: 100 MG, 1X/DAY
     Route: 042
     Dates: start: 20100222, end: 20100304
  2. PIPERACILLIN SODIUM W/TAZOBACTAM SODIUM [Concomitant]
     Indication: PNEUMONIA STREPTOCOCCAL
     Dosage: UNK
     Dates: start: 20100222
  3. MERONEM [Concomitant]
     Indication: PNEUMONIA STREPTOCOCCAL
     Dosage: UNK
  4. METAMIZOLE [Concomitant]
     Dosage: 25 GTT, 4X/DAY
     Route: 048
  5. HYDROCORTISON [Concomitant]
     Indication: ACUTE RESPIRATORY DISTRESS SYNDROME
     Dosage: UNK
     Dates: start: 20100224
  6. HYDROCORTISON [Concomitant]
     Indication: SEPSIS
  7. RANITIDINE [Concomitant]
     Indication: PROPHYLAXIS AGAINST GASTROINTESTINAL ULCER
  8. FENTANYL [Concomitant]
     Indication: MECHANICAL VENTILATION
  9. BISOPROLOL [Concomitant]
     Dosage: 2.5 MG, 1X/DAY
     Route: 048
  10. TAMOXIFEN [Concomitant]
     Indication: BREAST CANCER FEMALE
     Dosage: 20 MG, 1X/DAY
     Route: 048
  11. PREDNISOLONE [Concomitant]
     Dosage: 10 MG, 1X/DAY

REACTIONS (5)
  - ACUTE RESPIRATORY DISTRESS SYNDROME [None]
  - DERMATITIS [None]
  - INTERTRIGO [None]
  - PANCYTOPENIA [None]
  - SEPTIC SHOCK [None]
